FAERS Safety Report 19060999 (Version 1)
Quarter: 2021Q1

REPORT INFORMATION
  Report Type: Spontaneous
  Country: JP (occurrence: JP)
  Receive Date: 20210326
  Receipt Date: 20210326
  Transmission Date: 20210420
  Serious: Yes (Death)
  Sender: FDA-Public Use
  Company Number: JP-CELLTRION INC.-2021JP003957

PATIENT

DRUGS (4)
  1. METHYLPREDNISOLONE. [Suspect]
     Active Substance: METHYLPREDNISOLONE
     Dosage: 125 MG/DAY
  2. INFLIXIMAB BS FOR I.V. INFUSION100 MG [NK] [Suspect]
     Active Substance: INFLIXIMAB
     Indication: LUNG DISORDER
     Dosage: 5 MG/KG (300 MG) WAS PERFORMED WITH MPSL?PULSE THERAPY (DAY 3)
     Route: 065
  3. METHYLPREDNISOLONE. [Suspect]
     Active Substance: METHYLPREDNISOLONE
     Indication: LUNG DISORDER
     Dosage: PULSE THERAPY (1,000 MG/DAY FOR 3 DAYS)
     Route: 065
  4. METHYLPREDNISOLONE. [Suspect]
     Active Substance: METHYLPREDNISOLONE
     Dosage: 62.5 MG/DAY

REACTIONS (4)
  - Respiratory failure [Fatal]
  - Lung disorder [Fatal]
  - Off label use [Unknown]
  - Drug effective for unapproved indication [Unknown]
